FAERS Safety Report 21386034 (Version 1)
Quarter: 2022Q3

REPORT INFORMATION
  Report Type: Spontaneous
  Country: DE (occurrence: DE)
  Receive Date: 20220928
  Receipt Date: 20220928
  Transmission Date: 20221026
  Serious: Yes (Hospitalization, Other)
  Sender: FDA-Public Use
  Company Number: DE-ADRED-07588-01

PATIENT
  Age: 54 Year
  Sex: Female
  Weight: 49 kg

DRUGS (20)
  1. INSULIN ASPART [Suspect]
     Active Substance: INSULIN ASPART
     Dosage: 300 IU/3ML, 6-6-6-0, PRE-FILLED SYRINGES
     Route: 058
  2. CANDESARTAN [Suspect]
     Active Substance: CANDESARTAN
     Dosage: 15 MG, 0-0-0-1, TABLETS
     Route: 048
  3. LERCANIDIPINE HYDROCHLORIDE [Suspect]
     Active Substance: LERCANIDIPINE HYDROCHLORIDE
     Dosage: 10 MG, 1-0-0-0, TABLETS
     Route: 048
  4. CLONIDINE [Suspect]
     Active Substance: CLONIDINE
     Dosage: 75 ?G, 1-0-1-0, TABLETS
     Route: 048
  5. INSULIN GLARGINE [Suspect]
     Active Substance: INSULIN GLARGINE
     Dosage: 300 IU/3ML, 0-0-0-20, PRE-FILLED SYRINGES
     Route: 058
  6. NEBIVOLOL [Suspect]
     Active Substance: NEBIVOLOL
     Dosage: 1-0-1-0
     Route: 048
  7. ALLOPURINOL [Concomitant]
     Active Substance: ALLOPURINOL
     Dosage: 100MG, 1-0-0-0, TABLETS
     Route: 048
  8. EPLERENONE [Concomitant]
     Active Substance: EPLERENONE
     Dosage: 25 MG, 1-0-0-0, TABLETS
     Route: 048
  9. LEVOTHYROXINE SODIUM [Concomitant]
     Active Substance: LEVOTHYROXINE SODIUM
     Dosage: 88 G, 1-0-0-0, TABLETS
     Route: 048
  10. PANTOPRAZOLE [Concomitant]
     Active Substance: PANTOPRAZOLE
     Dosage: 40 MG, 1-0-0-0, TABLETS
     Route: 048
  11. SODIUM BICARBONATE [Concomitant]
     Active Substance: SODIUM BICARBONATE
     Dosage: 1G, 1-1-1-0, TABLETS
     Route: 048
  12. ATORVASTATIN [Concomitant]
     Active Substance: ATORVASTATIN
     Dosage: 40 MG, 0-0-1-0, TABLETS
     Route: 048
  13. SEVELAMER [Concomitant]
     Active Substance: SEVELAMER
     Dosage: 800 MG, 2-2-2-0, TABLETS
     Route: 048
  14. ALFACALCIDOL [Concomitant]
     Active Substance: ALFACALCIDOL
     Dosage: 0.25 G, 0-0-1-0
     Route: 048
  15. TORSEMIDE [Concomitant]
     Active Substance: TORSEMIDE
     Dosage: 200MG, 1-0-0-0
     Route: 048
  16. VITA D [COLECALCIFEROL] [Concomitant]
     Dosage: 20000 IU, SATURDAYS
     Route: 048
  17. ERYTHROPOIETIN [Concomitant]
     Active Substance: ERYTHROPOIETIN
     Dosage: MONDAYS, PRE-FILLED SYRINGES
     Route: 058
  18. CALCIUM ACETATE\MAGNESIUM CARBONATE [Concomitant]
     Active Substance: CALCIUM ACETATE\MAGNESIUM CARBONATE
     Dosage: 1-1-1-0
     Route: 048
  19. SELENASE [SODIUM SELENITE] [Concomitant]
     Dosage: 100 G, 1-0-0-0, AMPOULES
     Route: 048
  20. BENFOTIAMINE [Concomitant]
     Active Substance: BENFOTIAMINE
     Dosage: 1-0-0-0
     Route: 048

REACTIONS (5)
  - Fall [Unknown]
  - Pain [Unknown]
  - Therapeutic drug monitoring analysis incorrectly performed [Unknown]
  - Syncope [Unknown]
  - Therapeutic drug monitoring analysis not performed [Unknown]
